FAERS Safety Report 5530267-8 (Version None)
Quarter: 2007Q4

REPORT INFORMATION
  Report Type: 
  Country: None (occurrence: None)
  Receive Date: 20071130
  Receipt Date: 20070529
  Transmission Date: 20080405
  Serious: No
  Sender: FDA-Public Use
  Company Number: A0653223A

PATIENT
  Age: 48 Year
  Sex: Female

DRUGS (6)
  1. AUGMENTIN XR [Suspect]
     Indication: SINUSITIS
     Dosage: 2TAB TWICE PER DAY
     Route: 048
     Dates: start: 20070525, end: 20070529
  2. ADVAIR DISKUS 100/50 [Concomitant]
  3. VENTOLIN HFA [Concomitant]
  4. ORTHO-NOVUM 7/7/7-21 [Concomitant]
  5. LEVOXYL [Concomitant]
  6. PREDNISONE TAB [Concomitant]

REACTIONS (3)
  - HYPOAESTHESIA ORAL [None]
  - RASH [None]
  - SWELLING [None]
